FAERS Safety Report 14335342 (Version 2)
Quarter: 2018Q2

REPORT INFORMATION
  Report Type: Report from Study
  Country: US (occurrence: US)
  Receive Date: 20171229
  Receipt Date: 20180530
  Transmission Date: 20180711
  Serious: Yes (Other)
  Sender: FDA-Public Use
  Company Number: US-ACCORD-062376

PATIENT
  Age: 66 Year
  Sex: Male

DRUGS (3)
  1. FLUOROURACIL. [Suspect]
     Active Substance: FLUOROURACIL
     Indication: PERITONEAL CARCINOMA METASTATIC
     Route: 042
  2. OXALIPLATIN. [Concomitant]
     Active Substance: OXALIPLATIN
     Indication: PERITONEAL CARCINOMA METASTATIC
     Route: 042
  3. FOLINIC ACID [Concomitant]
     Active Substance: LEUCOVORIN
     Indication: PERITONEAL CARCINOMA METASTATIC
     Route: 042

REACTIONS (3)
  - Off label use [Unknown]
  - Cardiotoxicity [Recovered/Resolved]
  - Chest pain [Recovered/Resolved]
